FAERS Safety Report 11878012 (Version 1)
Quarter: 2015Q4

REPORT INFORMATION
  Report Type: Spontaneous
  Country: US (occurrence: None)
  Receive Date: 20151229
  Receipt Date: 20151229
  Transmission Date: 20160305
  Serious: Yes (Death)
  Sender: FDA-Public Use
  Company Number: None

PATIENT
  Age: 71 Year
  Sex: Male
  Weight: 79.6 kg

DRUGS (1)
  1. HEPARIN [Suspect]
     Active Substance: HEPARIN SODIUM
     Indication: DEEP VEIN THROMBOSIS
     Route: 042
     Dates: start: 20151118, end: 20151122

REACTIONS (6)
  - Loss of consciousness [None]
  - Haemorrhage [None]
  - Pulse absent [None]
  - Cardio-respiratory arrest [None]
  - Respiratory acidosis [None]
  - Unresponsive to stimuli [None]

NARRATIVE: CASE EVENT DATE: 20151122
